FAERS Safety Report 5589512-5 (Version None)
Quarter: 2007Q4

REPORT INFORMATION
  Report Type: 
  Country: None (occurrence: None)
  Receive Date: 20071212
  Receipt Date: 20070622
  Transmission Date: 20080405
  Serious: Yes (Hospitalization, Disabling, Other)
  Sender: FDA-Public Use
  Company Number: USA-2007-0027994

PATIENT
  Sex: Female

DRUGS (1)
  1. OXYCONTIN [Suspect]
     Indication: PAIN
     Dosage: 80 MG, TID, ORAL
     Route: 048
     Dates: start: 19950101

REACTIONS (7)
  - ACTIVITIES OF DAILY LIVING IMPAIRED [None]
  - ANXIETY [None]
  - DRUG DEPENDENCE [None]
  - EMOTIONAL DISTRESS [None]
  - IMPAIRED WORK ABILITY [None]
  - PAIN [None]
  - WITHDRAWAL SYNDROME [None]
